FAERS Safety Report 5780404-5 (Version None)
Quarter: 2008Q2

REPORT INFORMATION
  Report Type: 
  Country: None (occurrence: None)
  Receive Date: 20080620
  Receipt Date: 20080611
  Transmission Date: 20081010
  Serious: Yes (Other)
  Sender: FDA-Public Use
  Company Number: US-JNJFOC-20071201106

PATIENT
  Sex: Male
  Weight: 65.77 kg

DRUGS (8)
  1. CISAPRIDE [Suspect]
     Route: 048
  2. CISAPRIDE [Suspect]
     Indication: GASTROINTESTINAL DISORDER
     Route: 048
  3. ULTRAM [Concomitant]
  4. MIRALAX [Concomitant]
     Indication: CONSTIPATION
  5. PROTONIX [Concomitant]
     Indication: GASTROOESOPHAGEAL REFLUX DISEASE
  6. DOCUSATE [Concomitant]
     Indication: CONSTIPATION
  7. FOSAMAX [Concomitant]
     Indication: OSTEOPOROSIS
  8. COLACE [Concomitant]
     Indication: CONSTIPATION

REACTIONS (1)
  - ELECTROCARDIOGRAM QT PROLONGED [None]
